FAERS Safety Report 15719432 (Version 6)
Quarter: 2018Q4

REPORT INFORMATION
  Report Type: Spontaneous
  Country: IN (occurrence: IN)
  Receive Date: 20181213
  Receipt Date: 20181217
  Transmission Date: 20190205
  Serious: Yes (Other)
  Sender: FDA-Public Use
  Company Number: PHHY2018IN179076

PATIENT
  Age: 37 Year
  Sex: Female

DRUGS (12)
  1. METHYLPREDNISOLONE. [Suspect]
     Active Substance: METHYLPREDNISOLONE
     Dosage: 1 G, UNK
     Route: 042
     Dates: start: 20150427, end: 20150502
  2. PREDNISOLONE. [Suspect]
     Active Substance: PREDNISOLONE
     Dosage: 15 MG, QD
     Route: 065
  3. PREDNISOLONE. [Suspect]
     Active Substance: PREDNISOLONE
     Dosage: 10 MG, QD
     Route: 065
  4. PREDNISOLONE. [Suspect]
     Active Substance: PREDNISOLONE
     Indication: NEUROMYELITIS OPTICA SPECTRUM DISORDER
     Dosage: 60 MG, QD
     Route: 065
  5. LAMIVUDINE. [Concomitant]
     Active Substance: LAMIVUDINE
     Indication: HIV INFECTION
     Route: 065
  6. METHYLPREDNISOLONE. [Suspect]
     Active Substance: METHYLPREDNISOLONE
     Indication: NEUROMYELITIS OPTICA SPECTRUM DISORDER
     Dosage: 1 G, QD
     Route: 042
  7. METHYLPREDNISOLONE. [Suspect]
     Active Substance: METHYLPREDNISOLONE
     Dosage: 1 G, UNK
     Route: 042
     Dates: start: 20151110, end: 20151115
  8. PREDNISOLONE. [Suspect]
     Active Substance: PREDNISOLONE
     Dosage: 7.5 MG, QD
     Route: 065
  9. TENOFOVIR [Concomitant]
     Active Substance: TENOFOVIR
     Indication: HIV INFECTION
     Route: 065
  10. AZATHIOPRINE. [Suspect]
     Active Substance: AZATHIOPRINE
     Indication: NEUROMYELITIS OPTICA SPECTRUM DISORDER
     Dosage: 50 MG, QD
     Route: 065
  11. METHYLPREDNISOLONE. [Suspect]
     Active Substance: METHYLPREDNISOLONE
     Dosage: 1 G, UNK
     Route: 042
     Dates: start: 20150213, end: 20150218
  12. EFAVIRENZ. [Concomitant]
     Active Substance: EFAVIRENZ
     Indication: HIV INFECTION
     Route: 065

REACTIONS (2)
  - Pancytopenia [Unknown]
  - Cushing^s syndrome [Unknown]
